FAERS Safety Report 7541383 (Version 2)
Quarter: 2013Q1

REPORT INFORMATION
  Report Type: Spontaneous
  Country: US (occurrence: US)
  Receive Date: 20100816
  Receipt Date: 20130121
  Transmission Date: 20140127
  Serious: Yes (Other)
  Sender: FDA-Public Use
  Company Number: US-BIOGENIDEC-2010BI027568

PATIENT
  Age: 47 Year
  Sex: Female

DRUGS (4)
  1. AVONEX [Suspect]
     Indication: MULTIPLE SCLEROSIS
     Route: 030
     Dates: start: 20041101, end: 20080606
  2. CELLCEPT [Concomitant]
  3. TYSABRI [Concomitant]
     Route: 042
     Dates: start: 20080714
  4. TYSABRI [Concomitant]
     Route: 042
     Dates: start: 20121025

REACTIONS (1)
  - Renal failure [Recovered/Resolved]
